FAERS Safety Report 11705988 (Version 1)
Quarter: 2015Q4

REPORT INFORMATION
  Report Type: Spontaneous
  Country: CA (occurrence: CA)
  Receive Date: 20151106
  Receipt Date: 20151106
  Transmission Date: 20160304
  Serious: Yes (Hospitalization, Other)
  Sender: FDA-Public Use
  Company Number: CA-EDGEMONT-2015EDG00044

PATIENT
  Age: 24 Year
  Sex: Female

DRUGS (8)
  1. LITHIUM. [Concomitant]
     Active Substance: LITHIUM
     Dosage: 900 MG, 1X/DAY
  2. CLONAZEPAM. [Concomitant]
     Active Substance: CLONAZEPAM
     Dosage: 1 MG, 3X/DAY (UP TO 10 MG/DAY)
  3. CAFFEINE. [Concomitant]
     Active Substance: CAFFEINE
     Dosage: UNK, 1X/DAY
  4. BUPROPION HYDROCHLORIDE EXTENDED RELEASE (XL) [Suspect]
     Active Substance: BUPROPION HYDROCHLORIDE
     Dosage: 300 MG EVERY 1 TO 2 HOURS (1500 TO 3000 MG DAILY)
     Route: 042
  5. NICOTINE. [Concomitant]
     Active Substance: NICOTINE
     Dosage: UNK, 1X/DAY
  6. CYMBALTA [Concomitant]
     Active Substance: DULOXETINE HYDROCHLORIDE
     Dosage: 90 MG, 1X/DAY
  7. OLANZAPINE. [Concomitant]
     Active Substance: OLANZAPINE
     Dosage: 10 MG, 1X/DAY
  8. CANNABIS [Concomitant]
     Active Substance: CANNABIS SATIVA SUBSP. INDICA TOP
     Dosage: UNK, 1X/DAY

REACTIONS (7)
  - Compartment syndrome [Recovering/Resolving]
  - Arterial occlusive disease [None]
  - Incorrect route of drug administration [Recovered/Resolved]
  - Cellulitis [Recovering/Resolving]
  - Drug abuse [None]
  - Necrosis [Recovering/Resolving]
  - Drug dependence [Unknown]

NARRATIVE: CASE EVENT DATE: 2011
